FAERS Safety Report 19002166 (Version 5)
Quarter: 2022Q3

REPORT INFORMATION
  Report Type: Report from Study
  Country: US (occurrence: US)
  Receive Date: 20210312
  Receipt Date: 20220824
  Transmission Date: 20221027
  Serious: No
  Sender: FDA-Public Use
  Company Number: US-GLAXOSMITHKLINE-US2020AMR253614

PATIENT

DRUGS (1)
  1. BELANTAMAB MAFODOTIN [Suspect]
     Active Substance: BELANTAMAB MAFODOTIN
     Indication: Plasma cell myeloma
     Dosage: UNK
     Dates: start: 20201109

REACTIONS (4)
  - Visual acuity reduced [Unknown]
  - Keratopathy [Unknown]
  - Foreign body sensation in eyes [Unknown]
  - Night blindness [Unknown]

NARRATIVE: CASE EVENT DATE: 20200915
